FAERS Safety Report 7039635-9 (Version None)
Quarter: 2010Q4

REPORT INFORMATION
  Report Type: 
  Country: None (occurrence: None)
  Receive Date: 20101012
  Receipt Date: 20101004
  Transmission Date: 20110411
  Serious: Yes (Congenital Anomaly)
  Sender: FDA-Public Use
  Company Number: A0885723A

PATIENT
  Sex: Female

DRUGS (3)
  1. PAXIL [Suspect]
     Indication: DEPRESSION
     Dosage: 20MG PER DAY
     Dates: start: 20000601, end: 20040801
  2. PRENATAL VITAMINS [Concomitant]
  3. PREVACID [Concomitant]
     Dates: start: 20050401

REACTIONS (3)
  - DRUG EXPOSURE DURING PREGNANCY [None]
  - PYLORIC STENOSIS [None]
  - VENTRICULAR SEPTAL DEFECT [None]
